FAERS Safety Report 5221863-6 (Version None)
Quarter: 2007Q1

REPORT INFORMATION
  Report Type: 
  Country: None (occurrence: None)
  Receive Date: 20070126
  Receipt Date: 20070126
  Transmission Date: 20070707
  Serious: Yes (Hospitalization)
  Sender: FDA-Public Use
  Company Number: None

PATIENT
  Age: 85 Year
  Sex: Male
  Weight: 60.2 kg

DRUGS (1)
  1. HEPARIN [Suspect]
     Indication: ANTICOAGULANT THERAPY
     Dosage: 5000IU     IV BOLUS;   11CC EVERY HOUR  IV DRIP
     Route: 040
     Dates: start: 20061003, end: 20061005

REACTIONS (2)
  - HAEMATOMA [None]
  - THROMBOCYTOPENIA [None]
